FAERS Safety Report 6495456-7 (Version None)
Quarter: 2009Q4

REPORT INFORMATION
  Report Type: 
  Country: None (occurrence: None)
  Receive Date: 20091214
  Receipt Date: 20090624
  Transmission Date: 20100525
  Serious: No
  Sender: FDA-Public Use
  Company Number: US-BRISTOL-MYERS SQUIBB COMPANY-14680474

PATIENT
  Age: 58 Year
  Sex: Male

DRUGS (4)
  1. ABILIFY [Suspect]
     Indication: SEASONAL AFFECTIVE DISORDER
     Dosage: DOSE WAS DECREASED TO 7.5MG, 5MG, THEN 2MG
     Dates: start: 20090301
  2. ABILIFY [Suspect]
     Indication: BIPOLAR II DISORDER
     Dosage: DOSE WAS DECREASED TO 7.5MG, 5MG, THEN 2MG
     Dates: start: 20090301
  3. EFFEXOR [Concomitant]
  4. WELLBUTRIN [Concomitant]

REACTIONS (1)
  - DYSKINESIA [None]
